FAERS Safety Report 8105159-0 (Version None)
Quarter: 2012Q1

REPORT INFORMATION
  Report Type: 
  Country: None (occurrence: None)
  Receive Date: 20120201
  Receipt Date: 20120110
  Transmission Date: 20120608
  Serious: Yes (Hospitalization)
  Sender: FDA-Public Use
  Company Number: US-ROXANE LABORATORIES, INC.-2012-EU-00104GD

PATIENT
  Age: 38 Year
  Sex: Female

DRUGS (4)
  1. MESALAMINE [Concomitant]
     Indication: COLITIS ULCERATIVE
  2. PREDNISONE TAB [Suspect]
     Indication: CROHN'S DISEASE
     Dosage: 40 MG
     Route: 048
  3. MESALAMINE [Concomitant]
     Indication: CROHN'S DISEASE
     Dosage: 3.2 G
     Route: 048
  4. PREDNISONE TAB [Suspect]
     Indication: COLITIS ULCERATIVE

REACTIONS (6)
  - SEPSIS [None]
  - ABDOMINAL PAIN [None]
  - ZYGOMYCOSIS [None]
  - HYPOTENSION [None]
  - LARGE INTESTINE PERFORATION [None]
  - GASTROINTESTINAL FUNGAL INFECTION [None]
